FAERS Safety Report 5511111-1 (Version None)
Quarter: 2007Q4

REPORT INFORMATION
  Report Type: 
  Country: None (occurrence: None)
  Receive Date: 20071107
  Receipt Date: 20071026
  Transmission Date: 20080405
  Serious: Yes (Other)
  Sender: FDA-Public Use
  Company Number: 2007-01807

PATIENT
  Age: 60 Year
  Sex: Male
  Weight: 60 kg

DRUGS (50)
  1. VELCADE [Suspect]
     Indication: MULTIPLE MYELOMA
     Dosage: 2.10 MG, INTRAVENOUS; 1.62 MG, INTRAVENOUS; 1.50 MG, INTRAVENOUS
     Route: 042
     Dates: start: 20070124, end: 20070203
  2. VELCADE [Suspect]
     Indication: MULTIPLE MYELOMA
     Dosage: 2.10 MG, INTRAVENOUS; 1.62 MG, INTRAVENOUS; 1.50 MG, INTRAVENOUS
     Route: 042
     Dates: start: 20070302, end: 20070406
  3. VELCADE [Suspect]
     Indication: MULTIPLE MYELOMA
     Dosage: 2.10 MG, INTRAVENOUS; 1.62 MG, INTRAVENOUS; 1.50 MG, INTRAVENOUS
     Route: 042
     Dates: start: 20070515, end: 20070525
  4. DEXAMETHASONE [Concomitant]
  5. ALLOPURINOL [Concomitant]
  6. CALCIUM POLYSTYRENE SULFONATE (CALCIUM POLYSTYRRENE SULFONATE) [Concomitant]
  7. BIOFERMIN (STREPTOCOCCUS FAECALIS, LACTOBACILLUS ACIDOPHILUS, BACILLUS [Concomitant]
  8. ACTONEL [Concomitant]
  9. PANTOSIN (PANTETHINE) [Concomitant]
  10. MAGNESIUM OXIDE (MAGNESIUM OXIDE) [Concomitant]
  11. BAKTAR (SULFAMETHOXAZOLE, TRIMETHOPRIM) [Concomitant]
  12. DIFLUCAN [Concomitant]
  13. VITAMEDIN CAPSULE (PYRIDOXINE HYDROCHLORIDE, CYANOCOBALAMIN, BENFOTIAM [Concomitant]
  14. LASIX [Concomitant]
  15. TANNALBIN (ALBUMIN TANNATE) [Concomitant]
  16. LOPERAMIDE HCL [Concomitant]
  17. PRIMPERAN TAB [Concomitant]
  18. NAUZELIN (DOMPERIDONE) [Concomitant]
  19. OMEPRAL (OMEPRAZOLE) [Concomitant]
  20. NOVAMIN (PROCHLORPERAZINE) [Concomitant]
  21. FLUCONAZOLE [Concomitant]
  22. ESPO (EPOETIN ALFA) [Concomitant]
  23. ROPION (FLURBIPROFEN AXETIL) [Concomitant]
  24. SOLU-CORTEF [Concomitant]
  25. PANTOL (DEXPANTHENOL) [Concomitant]
  26. HUMANT ANTI-D IMMUNGLOBULIN ^SSI^ (IMMUNOGLOBULIN HUMAN ANTI-RH) [Concomitant]
  27. ISODINE (POVIDONE-IODINE) [Concomitant]
  28. MAXIPIME [Concomitant]
  29. TARGOCID [Concomitant]
  30. TIENAM (IMIPENEM, CILASTATIN) [Concomitant]
  31. ADONA (CARBAZOCHROME SODIUM SULFONATE) [Concomitant]
  32. TRANSAMIN (TRANEXAMIC ACID) [Concomitant]
  33. AZULENE (AZULENE) [Concomitant]
  34. LEVOFLOXACIN [Concomitant]
  35. TARIVID OPHTHALMIC (OFLOXACIN) [Concomitant]
  36. ARASENA A (VIDARABINE) [Concomitant]
  37. SOSEGON (PENTAZOCINE) [Concomitant]
  38. ATARAX-P (HYDROXYZINE) [Concomitant]
  39. ACYCLOVIR [Concomitant]
  40. TOFRANIL [Concomitant]
  41. VENOGLOBULIN-I [Concomitant]
  42. ALLOID (SODIUM ALGINATE) [Concomitant]
  43. NAUZELIN (DOMPERIDONE) [Concomitant]
  44. DEPAS (ETIZOLAM) [Concomitant]
  45. RED BLOOD CELLS [Concomitant]
  46. PLATELETS [Concomitant]
  47. KYTRIL [Concomitant]
  48. PRIMPERAN TAB [Concomitant]
  49. ATARAX (HHYDROXYZINE HYDROCHLORIDE) [Concomitant]
  50. TAVEGYL (CLEMASTINE) [Concomitant]

REACTIONS (5)
  - ORTHOSTATIC HYPOTENSION [None]
  - PAIN [None]
  - PLATELET COUNT DECREASED [None]
  - PRURITUS [None]
  - RASH [None]
